FAERS Safety Report 10684086 (Version 1)
Quarter: 2014Q4

REPORT INFORMATION
  Report Type: Spontaneous
  Country: GB (occurrence: GB)
  Receive Date: 20141230
  Receipt Date: 20141230
  Transmission Date: 20150529
  Serious: Yes (Other)
  Sender: FDA-Public Use
  Company Number: PHHY2014GB169407

PATIENT
  Age: 24 Year
  Sex: Female
  Weight: 70 kg

DRUGS (3)
  1. SALBUTAMOL [Suspect]
     Active Substance: ALBUTEROL
     Indication: ASTHMA
     Route: 055
     Dates: start: 20141212, end: 20141215
  2. PARACETAMOL [Concomitant]
     Active Substance: ACETAMINOPHEN
  3. STREPSILS (AMYLMETACRESOL\DICHLOROBENZYL ALCOHOL) [Concomitant]
     Active Substance: AMYLMETACRESOL\DICHLOROBENZYL ALCOHOL

REACTIONS (5)
  - Tremor [Recovered/Resolved]
  - Oropharyngeal pain [Recovering/Resolving]
  - Back pain [Recovering/Resolving]
  - Eructation [Recovering/Resolving]
  - Dysphagia [Recovering/Resolving]

NARRATIVE: CASE EVENT DATE: 20141212
